APPROVED DRUG PRODUCT: NEOSPORIN
Active Ingredient: GRAMICIDIN; NEOMYCIN SULFATE; POLYMYXIN B SULFATE
Strength: 0.025MG/ML;EQ 1.75MG BASE/ML;10,000 UNITS/ML
Dosage Form/Route: SOLUTION/DROPS;OPHTHALMIC
Application: A060582 | Product #001
Applicant: MONARCH PHARMACEUTICALS LLC
Approved: Approved Prior to Jan 1, 1982 | RLD: No | RS: No | Type: DISCN